FAERS Safety Report 20100266 (Version 3)
Quarter: 2022Q1

REPORT INFORMATION
  Report Type: Spontaneous
  Country: US (occurrence: US)
  Receive Date: 20211123
  Receipt Date: 20220103
  Transmission Date: 20220424
  Serious: No
  Sender: FDA-Public Use
  Company Number: US-PURACAP-US-2021EPCSPO01191

PATIENT
  Age: 84 Year
  Sex: Male
  Weight: 180 kg

DRUGS (3)
  1. OMEGA-3-ACID ETHYL ESTERS [Suspect]
     Active Substance: OMEGA-3-ACID ETHYL ESTERS
     Indication: Blood cholesterol increased
     Dosage: 02 CAPSULES EACH TWICE A DAY
     Route: 048
     Dates: start: 20210901, end: 20210915
  2. OMEGA-3-ACID ETHYL ESTERS [Suspect]
     Active Substance: OMEGA-3-ACID ETHYL ESTERS
     Indication: Blood triglycerides abnormal
  3. PRAVACHOL [Concomitant]
     Active Substance: PRAVASTATIN SODIUM
     Indication: Product used for unknown indication
     Route: 065

REACTIONS (5)
  - Urticaria [Recovered/Resolved]
  - Product odour abnormal [Recovered/Resolved]
  - Rash [Recovered/Resolved]
  - Manufacturing materials issue [Unknown]
  - Product substitution issue [Unknown]

NARRATIVE: CASE EVENT DATE: 20210901
